FAERS Safety Report 8491094-5 (Version None)
Quarter: 2012Q3

REPORT INFORMATION
  Report Type: 
  Country: None (occurrence: None)
  Receive Date: 20120706
  Receipt Date: 20120629
  Transmission Date: 20120928
  Serious: Yes (Death, Life-Threatening, Hospitalization, Other)
  Sender: FDA-Public Use
  Company Number: BR-BAYER-2012-065063

PATIENT
  Age: 47 Year
  Sex: Male

DRUGS (5)
  1. PLACEBO [Suspect]
     Dosage: 600 MG DAILY
     Route: 048
     Dates: start: 20110214, end: 20110425
  2. PLACEBO [Suspect]
     Indication: HEPATIC NEOPLASM MALIGNANT
     Dosage: 800 MG DAILY
     Route: 048
     Dates: start: 20101229
  3. OMEPRAZOLE [Concomitant]
     Dosage: UNK
     Dates: start: 20110406, end: 20110510
  4. SORAFENIB (RAF KINASE INHIBITOR) [Suspect]
     Indication: HEPATIC NEOPLASM MALIGNANT
     Dosage: 400 MG DAILY
     Route: 048
     Dates: start: 20101229, end: 20110425
  5. ACETAMINOPHEN [Concomitant]
     Dosage: UNK
     Dates: start: 20110330, end: 20110426

REACTIONS (6)
  - DEEP VEIN THROMBOSIS [None]
  - HYPONATRAEMIA [None]
  - HAEMATEMESIS [None]
  - NEOPLASM MALIGNANT [None]
  - ASCITES [None]
  - PULMONARY EMBOLISM [None]
